FAERS Safety Report 5195102-9 (Version None)
Quarter: 2006Q4

REPORT INFORMATION
  Report Type: 
  Country: None (occurrence: None)
  Receive Date: 20061229
  Receipt Date: 20061216
  Transmission Date: 20070319
  Serious: Yes (Other)
  Sender: FDA-Public Use
  Company Number: US-PFIZER INC-2006154520

PATIENT
  Sex: Female

DRUGS (2)
  1. EXUBERA [Suspect]
  2. NOVOLIN [Concomitant]

REACTIONS (2)
  - ABNORMAL BEHAVIOUR [None]
  - BLOOD GLUCOSE DECREASED [None]
